FAERS Safety Report 5072803-4 (Version None)
Quarter: 2006Q3

REPORT INFORMATION
  Report Type: 
  Country: None (occurrence: None)
  Receive Date: 20060801
  Receipt Date: 20060719
  Transmission Date: 20061208
  Serious: Yes (Hospitalization)
  Sender: FDA-Public Use
  Company Number: SGB1-2006-00290

PATIENT
  Age: 38 Year
  Sex: Male

DRUGS (9)
  1. LANTHANUM CARBONATE [Suspect]
     Indication: HYPERPHOSPHATAEMIA
     Dosage: 750MG, ORAL
     Route: 048
     Dates: start: 20060508, end: 20060520
  2. ENALAPRIL MALEATE [Concomitant]
  3. NIFEDIPINE [Concomitant]
  4. DOXAZOSIN MESYLATE [Concomitant]
  5. BLOPRESS (CANDESARTAN CILEXETIL) [Concomitant]
  6. LASIX /00032601/ (FUROSEMIDE) [Concomitant]
  7. ALFAROL (ALFACALCIDOL) [Concomitant]
  8. CALTANID (CALCITONIN, SALMON) [Concomitant]
  9. RENAGEL /01459901/ (SEVELAMER) [Concomitant]

REACTIONS (10)
  - BLOOD CALCIUM DECREASED [None]
  - BLOOD CHLORIDE DECREASED [None]
  - CONVULSION [None]
  - FALL [None]
  - HYPOAESTHESIA [None]
  - LACERATION [None]
  - MUSCLE SPASMS [None]
  - SOMNOLENCE [None]
  - TOOTH INJURY [None]
  - TREMOR [None]
